FAERS Safety Report 4928523-7 (Version None)
Quarter: 2006Q1

REPORT INFORMATION
  Report Type: 
  Country: None (occurrence: None)
  Receive Date: 20060223
  Receipt Date: 20060208
  Transmission Date: 20060701
  Serious: Yes (Hospitalization)
  Sender: FDA-Public Use
  Company Number: 2006-031

PATIENT
  Age: 51 Year
  Sex: Female

DRUGS (10)
  1. CIPROFLOXACIN HCL [Suspect]
  2. AMISULPRIDE [Concomitant]
  3. LITHIUM [Concomitant]
  4. LACTULOSE [Concomitant]
  5. ENOXAPARIN SODIUM [Concomitant]
  6. PROPOFOL [Concomitant]
  7. MIDAZOLAM HCL [Concomitant]
  8. NORADRENALINE [Concomitant]
  9. POTASSIUM [Concomitant]
  10. INSULIN [Concomitant]

REACTIONS (1)
  - LOSS OF CONSCIOUSNESS [None]
